FAERS Safety Report 18890754 (Version 2)
Quarter: 2021Q3

REPORT INFORMATION
  Report Type: Spontaneous
  Country: US (occurrence: US)
  Receive Date: 20210215
  Receipt Date: 20210809
  Transmission Date: 20211014
  Serious: No
  Sender: FDA-Public Use
  Company Number: NVSC2021US026391

PATIENT
  Sex: Female

DRUGS (1)
  1. COSENTYX [Suspect]
     Active Substance: SECUKINUMAB
     Indication: RHEUMATOID ARTHRITIS
     Dosage: 150 MG, Q4W
     Route: 065

REACTIONS (4)
  - Product dose omission issue [Unknown]
  - Product use in unapproved indication [Unknown]
  - Illness [Unknown]
  - Inappropriate schedule of product administration [Unknown]
